FAERS Safety Report 5429486-0 (Version None)
Quarter: 2007Q3

REPORT INFORMATION
  Report Type: 
  Country: None (occurrence: None)
  Receive Date: 20070829
  Receipt Date: 20070822
  Transmission Date: 20080115
  Serious: Yes (Other)
  Sender: FDA-Public Use
  Company Number: B0482678A

PATIENT
  Age: 50 Year
  Sex: Female

DRUGS (2)
  1. SERETIDE [Suspect]
     Indication: DRUG USE FOR UNKNOWN INDICATION
     Route: 065
     Dates: start: 20050801
  2. BRICANYL [Concomitant]
     Route: 065

REACTIONS (2)
  - ASTHMA [None]
  - PHARMACEUTICAL PRODUCT COMPLAINT [None]
